FAERS Safety Report 6025824-9 (Version None)
Quarter: 2008Q4

REPORT INFORMATION
  Report Type: 
  Country: None (occurrence: None)
  Receive Date: 20081229
  Receipt Date: 20081222
  Transmission Date: 20090506
  Serious: Yes (Other)
  Sender: FDA-Public Use
  Company Number: IPS_01404_2008

PATIENT
  Age: 64 Year
  Sex: Male
  Weight: 59.4212 kg

DRUGS (1)
  1. APOKYN [Suspect]
     Indication: PARKINSON'S DISEASE
     Dosage: 0.2 ML TO 0.3 ML, ONCE DAILY SUBCUTANEOUS
     Route: 058
     Dates: start: 20081219

REACTIONS (8)
  - BURNING SENSATION [None]
  - CHEST PAIN [None]
  - DYSKINESIA [None]
  - FLUSHING [None]
  - HYPOTENSION [None]
  - NAUSEA [None]
  - PALLOR [None]
  - YAWNING [None]
